FAERS Safety Report 10203803 (Version 1)
Quarter: 2014Q2

REPORT INFORMATION
  Report Type: Spontaneous
  Country: US (occurrence: US)
  Receive Date: 20140529
  Receipt Date: 20140529
  Transmission Date: 20141212
  Serious: No
  Sender: FDA-Public Use
  Company Number: US-PFIZER INC-2014146385

PATIENT
  Sex: Female

DRUGS (8)
  1. EFFEXOR [Suspect]
     Dosage: UNK
  2. IODINE [Suspect]
     Dosage: UNK
  3. TEGRETOL [Suspect]
     Dosage: UNK
  4. LEVAQUIN [Suspect]
     Dosage: UNK
  5. CIPRO [Suspect]
     Dosage: UNK
  6. TOPAMAX [Suspect]
     Dosage: UNK
  7. TORADOL [Suspect]
     Dosage: UNK
  8. ULTRAM [Suspect]
     Dosage: UNK

REACTIONS (1)
  - Drug hypersensitivity [Unknown]
